FAERS Safety Report 11953281 (Version 1)
Quarter: 2016Q1

REPORT INFORMATION
  Report Type: Spontaneous
  Country: FR (occurrence: FR)
  Receive Date: 20160126
  Receipt Date: 20160126
  Transmission Date: 20160526
  Serious: Yes (Hospitalization)
  Sender: FDA-Public Use
  Company Number: FR-PFIZER INC-2016034642

PATIENT
  Age: 71 Year
  Sex: Male

DRUGS (25)
  1. LEVACT [Suspect]
     Active Substance: BENDAMUSTINE HYDROCHLORIDE
     Dosage: UNK, CYCLIC
     Route: 041
     Dates: start: 20151104, end: 20151105
  2. KERLONE [Concomitant]
     Active Substance: BETAXOLOL HYDROCHLORIDE
  3. DIFFU K [Concomitant]
     Active Substance: POTASSIUM CHLORIDE
  4. SOLU-MEDROL [Suspect]
     Active Substance: METHYLPREDNISOLONE SODIUM SUCCINATE
     Indication: CHEMOTHERAPY
     Dosage: UNK, CYCLIC
     Route: 051
     Dates: start: 20150910, end: 20150911
  5. SOLU-MEDROL [Suspect]
     Active Substance: METHYLPREDNISOLONE SODIUM SUCCINATE
     Dosage: UNK, CYCLIC
     Route: 051
     Dates: start: 20151007, end: 20151008
  6. MABTHERA [Suspect]
     Active Substance: RITUXIMAB
     Indication: CHEMOTHERAPY
     Dosage: UNK, CYCLIC
     Route: 041
     Dates: start: 20150910, end: 20150911
  7. BACTRIM [Concomitant]
     Active Substance: SULFAMETHOXAZOLE\TRIMETHOPRIM
  8. MABTHERA [Suspect]
     Active Substance: RITUXIMAB
     Dosage: UNK, CYCLIC
     Route: 041
     Dates: start: 20151007, end: 20151008
  9. LEVACT [Suspect]
     Active Substance: BENDAMUSTINE HYDROCHLORIDE
     Indication: CHEMOTHERAPY
     Dosage: UNK, CYCLIC
     Route: 041
     Dates: start: 20150910, end: 20150911
  10. HEPATITIS B SURFACE ANTIGEN [Suspect]
     Active Substance: HEPATITIS B VIRUS HBSAG SURFACE PROTEIN ANTIGEN
     Indication: IMMUNISATION
     Dosage: 1 DF, SINGLE
     Route: 051
     Dates: start: 20151116, end: 20151116
  11. COTRIATEC [Concomitant]
     Active Substance: HYDROCHLOROTHIAZIDE\RAMIPRIL
  12. TAHOR [Suspect]
     Active Substance: ATORVASTATIN CALCIUM
     Dosage: 1 DF, 1X/DAY
     Route: 048
     Dates: end: 20151214
  13. KETOCONAZOLE. [Concomitant]
     Active Substance: KETOCONAZOLE
  14. LEVACT [Suspect]
     Active Substance: BENDAMUSTINE HYDROCHLORIDE
     Dosage: UNK, CYCLIC
     Route: 041
     Dates: start: 20151007, end: 20151008
  15. INFLUENZA VACCINE INACTIVATED [Suspect]
     Active Substance: INFLUENZA VIRUS VACCINE
     Indication: INFLUENZA IMMUNISATION
     Dosage: 1 DF, SINGLE
     Route: 051
     Dates: start: 20151026, end: 20151026
  16. CHLORHEXIDINE [Concomitant]
     Active Substance: CHLORHEXIDINE
  17. SOLU-MEDROL [Suspect]
     Active Substance: METHYLPREDNISOLONE SODIUM SUCCINATE
     Dosage: UNK, CYCLIC
     Route: 051
     Dates: start: 20151104, end: 20151105
  18. MABTHERA [Suspect]
     Active Substance: RITUXIMAB
     Dosage: UNK, CYCLIC
     Route: 041
     Dates: start: 20151104, end: 20151105
  19. NEULASTA [Suspect]
     Active Substance: PEGFILGRASTIM
     Dosage: 6 MG, MONTHLY
     Route: 058
     Dates: start: 20150914
  20. ZELITREX [Concomitant]
     Active Substance: VALACYCLOVIR HYDROCHLORIDE
  21. LYRICA [Concomitant]
     Active Substance: PREGABALIN
  22. DIPROSALIC [Concomitant]
     Active Substance: BETAMETHASONE DIPROPIONATE
  23. APSOR [Concomitant]
     Active Substance: TACALCITOL
  24. NEULASTA [Suspect]
     Active Substance: PEGFILGRASTIM
     Dosage: UNK
     Dates: start: 20151014
  25. OMEPRAZOLE. [Concomitant]
     Active Substance: OMEPRAZOLE

REACTIONS (1)
  - Dermatitis exfoliative [Recovered/Resolved]

NARRATIVE: CASE EVENT DATE: 20151202
